FAERS Safety Report 8123413-3 (Version None)
Quarter: 2012Q1

REPORT INFORMATION
  Report Type: 
  Country: None (occurrence: None)
  Receive Date: 20120208
  Receipt Date: 20120203
  Transmission Date: 20120608
  Serious: Yes (Other)
  Sender: FDA-Public Use
  Company Number: US-PFIZER INC-2012009985

PATIENT
  Sex: Female
  Weight: 65.76 kg

DRUGS (12)
  1. IMDUR [Concomitant]
     Dosage: 30 MG, UNK
  2. ZETIA [Suspect]
     Indication: BLOOD CHOLESTEROL INCREASED
     Dosage: UNK
     Route: 048
  3. ASPIRIN [Concomitant]
     Dosage: 81 MG, UNK
  4. METOPROLOL [Concomitant]
     Indication: HYPERTENSION
     Dosage: 75 MG, 2X/DAY
     Dates: start: 20100821
  5. METFORMIN [Concomitant]
     Indication: DIABETES MELLITUS
     Dosage: 500 MG, 2X/DAY
     Dates: start: 20100821
  6. PLAVIX [Concomitant]
     Dosage: 75 MG, UNK
  7. PRAVACHOL [Suspect]
     Indication: BLOOD CHOLESTEROL INCREASED
     Dosage: UNK
     Route: 048
  8. COZAAR [Concomitant]
     Indication: HYPERTENSION
     Dosage: 50 MG, DAILY
     Route: 048
     Dates: start: 20100821
  9. LIPITOR [Suspect]
     Indication: BLOOD CHOLESTEROL INCREASED
     Dosage: UNK
     Route: 048
     Dates: start: 20110916
  10. PRAVASTATIN [Suspect]
     Indication: BLOOD CHOLESTEROL INCREASED
     Dosage: UNK
  11. CRESTOR [Suspect]
     Indication: BLOOD CHOLESTEROL INCREASED
     Dosage: UNK
     Route: 048
  12. TOPROL-XL [Concomitant]
     Dosage: 50 MG, UNK

REACTIONS (7)
  - HIGH DENSITY LIPOPROTEIN DECREASED [None]
  - ARTHRALGIA [None]
  - DRUG INEFFECTIVE [None]
  - LOW DENSITY LIPOPROTEIN INCREASED [None]
  - PAIN IN EXTREMITY [None]
  - STENT PLACEMENT [None]
  - PAIN [None]
